FAERS Safety Report 16867286 (Version 1)
Quarter: 2019Q4

REPORT INFORMATION
  Report Type: Spontaneous
  Country: US (occurrence: US)
  Receive Date: 20190929
  Receipt Date: 20190929
  Transmission Date: 20200122
  Serious: Yes (Life-Threatening, Hospitalization, Disabling, Other)
  Sender: FDA-Public Use
  Company Number: None

PATIENT
  Age: 86 Year
  Sex: Male
  Weight: 76.5 kg

DRUGS (1)
  1. LOSARTAN 25MG [Suspect]
     Active Substance: LOSARTAN
     Indication: HYPERTENSION
     Dosage: ?          QUANTITY:1 TABLET(S);?
     Route: 048

REACTIONS (6)
  - Constipation [None]
  - Abdominal distension [None]
  - Metastases to lymph nodes [None]
  - Diarrhoea [None]
  - Neoplasm malignant [None]
  - Pain [None]

NARRATIVE: CASE EVENT DATE: 20190722
